FAERS Safety Report 7408792-4 (Version None)
Quarter: 2011Q2

REPORT INFORMATION
  Report Type: 
  Country: None (occurrence: None)
  Receive Date: 20110412
  Receipt Date: 20110405
  Transmission Date: 20111010
  Serious: Yes (Other)
  Sender: FDA-Public Use
  Company Number: AU-AMGEN-QUU256167

PATIENT
  Age: 44 Year
  Sex: Female
  Weight: 53 kg

DRUGS (6)
  1. NEULASTA [Suspect]
     Indication: CHEMOTHERAPY
     Dosage: 6 MG, UNK
     Route: 058
     Dates: start: 20070822
  2. IRINOTECAN HCL [Suspect]
  3. IDARUBICIN [Suspect]
     Dosage: 13 MG, UNK
     Route: 042
     Dates: start: 20070815, end: 20071006
  4. ETOPOSIDE [Suspect]
     Dosage: 110 MG, UNK
     Route: 042
     Dates: start: 20070815, end: 20071010
  5. CYTARABINE [Suspect]
     Dosage: 4.4 G, UNK
     Route: 042
     Dates: start: 20070815
  6. EPIRUBICIN HYDROCHLORIDE [Suspect]
     Dosage: UNK MG, UNK
     Route: 042
     Dates: start: 20070815, end: 20071010

REACTIONS (2)
  - DRUG INEFFECTIVE [None]
  - FEBRILE NEUTROPENIA [None]
